FAERS Safety Report 5285019-3 (Version None)
Quarter: 2007Q2

REPORT INFORMATION
  Report Type: 
  Country: None (occurrence: None)
  Receive Date: 20070403
  Receipt Date: 20070205
  Transmission Date: 20071010
  Serious: Yes (Hospitalization)
  Sender: FDA-Public Use
  Company Number: CA-SANOFI-SYNTHELABO-A01200700763

PATIENT
  Sex: Female
  Weight: 92 kg

DRUGS (20)
  1. ALTACE [Concomitant]
     Indication: CARDIAC DISORDER
     Route: 065
     Dates: start: 20060614, end: 20061204
  2. ZANTAC [Concomitant]
     Indication: DRUG USE FOR UNKNOWN INDICATION
     Route: 065
     Dates: start: 20060614, end: 20061204
  3. FOLIC ACID [Concomitant]
     Indication: DRUG USE FOR UNKNOWN INDICATION
     Dosage: UNK
     Route: 065
  4. STUDY DRUG [Concomitant]
     Indication: DRUG USE FOR UNKNOWN INDICATION
     Dosage: UNK
     Route: 065
     Dates: start: 20060614
  5. PLAVIX [Suspect]
     Indication: MYOCARDIAL INFARCTION
     Route: 048
     Dates: start: 20060614, end: 20061204
  6. PREMARIN CREAM [Concomitant]
     Indication: MENOPAUSE
     Route: 065
     Dates: start: 20060416, end: 20061204
  7. RESTORIL [Concomitant]
     Indication: INSOMNIA
     Route: 065
     Dates: start: 20060713
  8. LASIX [Concomitant]
     Indication: DRUG USE FOR UNKNOWN INDICATION
     Route: 065
     Dates: start: 20060614, end: 20061204
  9. PREDNISONE [Concomitant]
     Indication: ARTHRITIS
     Route: 065
     Dates: start: 20060614, end: 20061204
  10. NITROSTAT [Concomitant]
     Indication: CARDIAC DISORDER
     Route: 065
     Dates: start: 20060614, end: 20061204
  11. TRIAZIDE [Concomitant]
     Indication: DRUG USE FOR UNKNOWN INDICATION
     Dosage: UNK
     Route: 065
     Dates: start: 20060614, end: 20061204
  12. SLOW-K [Concomitant]
     Indication: DRUG USE FOR UNKNOWN INDICATION
     Route: 065
     Dates: start: 20060614, end: 20061204
  13. LOPRESSOR [Concomitant]
     Indication: MYOCARDIAL INFARCTION
     Route: 065
     Dates: start: 20060614, end: 20061204
  14. COCHICINE [Concomitant]
     Indication: ARTHRITIS
     Route: 065
     Dates: start: 20060614, end: 20061204
  15. FOSAMAX [Concomitant]
     Indication: ARTHRITIS
     Route: 065
     Dates: start: 20060614, end: 20061204
  16. METHOTREXATE [Concomitant]
     Indication: ARTHRITIS
     Route: 065
     Dates: start: 20060614, end: 20061204
  17. ENBREL [Concomitant]
     Indication: ARTHRITIS
     Route: 065
     Dates: start: 20060614, end: 20061204
  18. LIPITOR [Concomitant]
     Indication: CARDIAC DISORDER
     Route: 065
     Dates: start: 20060614, end: 20061204
  19. ASPIRIN [Suspect]
     Indication: MYOCARDIAL INFARCTION
     Route: 065
     Dates: start: 20060614, end: 20061204
  20. CELEBREX [Suspect]
     Indication: ARTHRITIS
     Route: 065
     Dates: start: 20060614, end: 20061204

REACTIONS (6)
  - GASTRITIS [None]
  - HAEMATEMESIS [None]
  - HAEMOGLOBIN DECREASED [None]
  - MELAENA [None]
  - OESOPHAGITIS HAEMORRHAGIC [None]
  - OESOPHAGITIS ULCERATIVE [None]
